FAERS Safety Report 9235006 (Version 2)
Quarter: 2013Q2

REPORT INFORMATION
  Report Type: Spontaneous
  Country: US (occurrence: US)
  Receive Date: 20130416
  Receipt Date: 20130425
  Transmission Date: 20140414
  Serious: Yes (Other)
  Sender: FDA-Public Use
  Company Number: US-PFIZER INC-2013113529

PATIENT
  Age: 39 Year
  Sex: Female
  Weight: 158 kg

DRUGS (10)
  1. GEODON [Suspect]
     Indication: BIPOLAR DISORDER
     Dosage: 240 MG, 1X/DAY
     Route: 048
  2. GEODON [Suspect]
     Indication: ANXIETY DISORDER
  3. GEODON [Suspect]
     Indication: PERSONALITY DISORDER
  4. TEGRETOL [Suspect]
     Dosage: 200MG IN THE AM AND 800MG AT PM
  5. OMEPRAZOLE [Concomitant]
     Dosage: 40 MG, UNK
  6. NEURONTIN [Concomitant]
     Dosage: 800 MG, 3X/DAY
  7. ATENOLOL [Concomitant]
     Dosage: 80 MG, 1X/DAY
  8. ZOCOR [Concomitant]
     Dosage: 40 MG, 1X/DAY
  9. CELEXA [Concomitant]
     Dosage: 40 MG, 1X/DAY
  10. DIAZEPAM [Concomitant]
     Indication: ANXIETY DISORDER
     Dosage: 10 MG, 1X/DAY

REACTIONS (3)
  - Ligament disorder [Unknown]
  - Blood sodium decreased [Unknown]
  - Off label use [Unknown]
